FAERS Safety Report 7590057-1 (Version None)
Quarter: 2011Q3

REPORT INFORMATION
  Report Type: 
  Country: None (occurrence: None)
  Receive Date: 20110705
  Receipt Date: 20110614
  Transmission Date: 20111222
  Serious: Yes (Congenital Anomaly)
  Sender: FDA-Public Use
  Company Number: A0934826A

PATIENT
  Sex: Female

DRUGS (1)
  1. PAROXETINE HCL [Suspect]
     Dosage: 20MG UNKNOWN
     Route: 064
     Dates: start: 20061201, end: 20070102

REACTIONS (3)
  - HYPOPLASTIC LEFT HEART SYNDROME [None]
  - COARCTATION OF THE AORTA [None]
  - MATERNAL EXPOSURE DURING PREGNANCY [None]
